FAERS Safety Report 24321508 (Version 1)
Quarter: 2024Q3

REPORT INFORMATION
  Report Type: Spontaneous
  Country: SE (occurrence: SE)
  Receive Date: 20240916
  Receipt Date: 20240916
  Transmission Date: 20241016
  Serious: Yes (Hospitalization)
  Sender: NOVO NORDISK
  Company Number: None

PATIENT
  Age: 39 Year
  Sex: Female
  Weight: 86 kg

DRUGS (1)
  1. RYBELSUS [Suspect]
     Active Substance: SEMAGLUTIDE
     Indication: Overweight
     Dosage: 7 MG, QD (1 TABLET 1 TIME DAILY)
     Route: 048
     Dates: start: 20240425, end: 20240831

REACTIONS (5)
  - Appendicitis [Recovering/Resolving]
  - Appendicitis perforated [Recovering/Resolving]
  - Nausea [Unknown]
  - Gastrooesophageal reflux disease [Unknown]
  - Product use in unapproved indication [Unknown]

NARRATIVE: CASE EVENT DATE: 20240101
